FAERS Safety Report 5664144-9 (Version None)
Quarter: 2008Q1

REPORT INFORMATION
  Report Type: 
  Country: None (occurrence: None)
  Receive Date: 20080312
  Receipt Date: 20080225
  Transmission Date: 20080703
  Serious: Yes (Other)
  Sender: FDA-Public Use
  Company Number: 430016J08USA

PATIENT
  Age: 50 Year
  Sex: Female

DRUGS (10)
  1. NOVANTRONE [Suspect]
     Indication: OFF LABEL USE
     Dosage: NOT REPORTED, NOT REPORTED
     Dates: start: 20070101, end: 20071101
  2. REBIF [Suspect]
     Indication: MULTIPLE SCLEROSIS
     Dosage: 44 MCG, 3 IN 1 WEEK, SUBCUTANEOUS
     Route: 058
     Dates: start: 20070808
  3. PROVIGIL [Concomitant]
  4. ZOLOFT [Concomitant]
  5. LEVOTHYROXINE (LEVOTHYROXINE /00068001/) [Concomitant]
  6. OMACOR [Concomitant]
  7. NEXIUM [Concomitant]
  8. BACLOFEN [Concomitant]
  9. DETROL LA [Concomitant]
  10. TYLENOL (COTYLENOL) [Concomitant]

REACTIONS (2)
  - EJECTION FRACTION DECREASED [None]
  - FATIGUE [None]
